FAERS Safety Report 5694868-9 (Version None)
Quarter: 2008Q2

REPORT INFORMATION
  Report Type: 
  Country: None (occurrence: None)
  Receive Date: 20080404
  Receipt Date: 20080121
  Transmission Date: 20081010
  Serious: Yes (Hospitalization)
  Sender: FDA-Public Use
  Company Number: A0704357A

PATIENT
  Age: 83 Year
  Sex: Male

DRUGS (7)
  1. ADVAIR HFA [Suspect]
     Indication: EMPHYSEMA
     Dosage: 1PUFF TWICE PER DAY
     Route: 055
     Dates: start: 20071224, end: 20071226
  2. ALBUTEROL [Concomitant]
  3. IPRATROPIUM BROMIDE [Concomitant]
  4. TRENTAL [Concomitant]
  5. SPIRONOLACTONE [Concomitant]
  6. FINASTERIDE [Concomitant]
  7. VITAMINS [Concomitant]

REACTIONS (1)
  - BLOOD PRESSURE INCREASED [None]
